FAERS Safety Report 9614445 (Version 1)
Quarter: 2013Q4

REPORT INFORMATION
  Report Type: Spontaneous
  Country: US (occurrence: None)
  Receive Date: 20131009
  Receipt Date: 20131009
  Transmission Date: 20140711
  Serious: Yes (Hospitalization)
  Sender: FDA-Public Use
  Company Number: None

PATIENT
  Age: 69 Year
  Sex: Male
  Weight: 97 kg

DRUGS (9)
  1. RIVAROXABAN [Suspect]
     Dosage: 1 PILL QD ORAL
     Route: 048
  2. ASPIRIN [Suspect]
     Indication: CORONARY ARTERY BYPASS
  3. PIOGLITAZONE [Concomitant]
  4. LISINOPRIL [Concomitant]
  5. METOPROLOL TARTRATE [Concomitant]
  6. ROSUVASTATIN [Concomitant]
  7. SPIRONOLACTONE [Concomitant]
  8. AMIODARONE [Concomitant]
  9. COENZYME Q10 [Concomitant]

REACTIONS (2)
  - Occult blood positive [None]
  - Iron deficiency anaemia [None]
